FAERS Safety Report 5061558-5 (Version None)
Quarter: 2006Q3

REPORT INFORMATION
  Report Type: 
  Country: None (occurrence: None)
  Receive Date: 20060721
  Receipt Date: 20060720
  Transmission Date: 20061208
  Serious: Yes (Other)
  Sender: FDA-Public Use
  Company Number: 220415

PATIENT
  Age: 58 Year
  Sex: Female
  Weight: 90.5 kg

DRUGS (7)
  1. AVASTIN [Suspect]
     Indication: BREAST CANCER METASTATIC
     Dosage: 15 MG/KG, Q3W, INTRAVENOUS
     Route: 042
     Dates: start: 20050228, end: 20051202
  2. ZOLEDRONIC ACID                  (ZOLEDRONIC ACID) [Suspect]
     Indication: BREAST CANCER METASTATIC
     Dosage: 4 MG, Q3W, INTRAVENOUS
     Route: 042
     Dates: start: 20050111, end: 20051110
  3. LETROZOLE             (LETROZOLE) [Suspect]
     Indication: BREAST CANCER METASTATIC
     Dosage: 2.5 MG, QD, ORAL
     Route: 048
  4. HYDROCHLOROTHIAZIDE [Concomitant]
  5. TOPROL-XL [Concomitant]
  6. MULTIVITAMIN [Concomitant]
  7. PERCOCET [Concomitant]

REACTIONS (2)
  - OSTEONECROSIS [None]
  - WISDOM TEETH REMOVAL [None]
